FAERS Safety Report 12199411 (Version 1)
Quarter: 2016Q1

REPORT INFORMATION
  Report Type: Spontaneous
  Country: US (occurrence: US)
  Receive Date: 20160322
  Receipt Date: 20160322
  Transmission Date: 20160526
  Serious: No
  Sender: FDA-Public Use
  Company Number: US-PFIZER INC-2016156253

PATIENT
  Age: 57 Year
  Sex: Female

DRUGS (1)
  1. IBRANCE [Suspect]
     Active Substance: PALBOCICLIB
     Indication: BREAST CANCER FEMALE
     Dosage: 100 MG EVERY OTHER DAY ALTERNATING WITH 75 MG FOR 21 DAYS, THEN OFF FOR 7 DAYS
     Route: 048

REACTIONS (7)
  - Fatigue [Unknown]
  - White blood cell count decreased [Unknown]
  - Hepatic enzyme increased [Unknown]
  - Red blood cell count decreased [Unknown]
  - Lymphocyte count abnormal [Unknown]
  - Disease progression [Unknown]
  - Breast cancer female [Unknown]
